FAERS Safety Report 5278459-X (Version None)
Quarter: 2007Q1

REPORT INFORMATION
  Report Type: 
  Country: None (occurrence: None)
  Receive Date: 20070322
  Receipt Date: 20070308
  Transmission Date: 20070707
  Serious: Yes (Death, Other)
  Sender: FDA-Public Use
  Company Number: MC200700206

PATIENT
  Age: 60 Year
  Sex: Male

DRUGS (5)
  1. ANGIOMAX [Suspect]
     Indication: PERCUTANEOUS CORONARY INTERVENTION
     Dosage: SEE IMAGE
     Dates: start: 20070302, end: 20070302
  2. ANGIOMAX [Suspect]
     Indication: PERCUTANEOUS CORONARY INTERVENTION
     Dosage: SEE IMAGE
     Dates: start: 20070302
  3. HEPARIN [Concomitant]
  4. INTEGRILIN [Concomitant]
  5. PLAVIX [Concomitant]

REACTIONS (3)
  - CORONARY ARTERY DISSECTION [None]
  - HAEMORRHAGE INTRACRANIAL [None]
  - POST PROCEDURAL COMPLICATION [None]
